FAERS Safety Report 6032932-5 (Version None)
Quarter: 2009Q1

REPORT INFORMATION
  Report Type: 
  Country: None (occurrence: None)
  Receive Date: 20090107
  Receipt Date: 20090107
  Transmission Date: 20090719
  Serious: Yes (Other)
  Sender: FDA-Public Use
  Company Number: None

PATIENT
  Age: 2 Year
  Sex: Male
  Weight: 11.3399 kg

DRUGS (1)
  1. SULFAMETHOXALE [Suspect]
     Indication: LYMPHADENOPATHY
     Dates: start: 20080709, end: 20080710

REACTIONS (4)
  - APHASIA [None]
  - CONVULSION [None]
  - DYSPHEMIA [None]
  - NERVOUS SYSTEM DISORDER [None]
